FAERS Safety Report 10774094 (Version 2)
Quarter: 2016Q1

REPORT INFORMATION
  Report Type: Other
  Country: US (occurrence: US)
  Receive Date: 20150208
  Receipt Date: 20160219
  Transmission Date: 20160525
  Serious: Yes (Other)
  Sender: FDA-Public Use
  Company Number: US-ACORDA-ACO_108119_2015

PATIENT
  Age: 46 Year
  Sex: Female
  Weight: 109.3 kg

DRUGS (2)
  1. AMPYRA [Suspect]
     Active Substance: DALFAMPRIDINE
     Indication: GAIT DISTURBANCE
     Dosage: 10 MG, BID
     Route: 048
     Dates: start: 2014
  2. TECFIDERA [Concomitant]
     Active Substance: DIMETHYL FUMARATE
     Indication: PRODUCT USED FOR UNKNOWN INDICATION
     Dosage: 240 MG, BID

REACTIONS (9)
  - Abnormal faeces [Not Recovered/Not Resolved]
  - Arthralgia [Recovering/Resolving]
  - Cartilage injury [Recovering/Resolving]
  - International normalised ratio increased [Unknown]
  - Condition aggravated [Unknown]
  - Faeces discoloured [Not Recovered/Not Resolved]
  - Activated partial thromboplastin time prolonged [Unknown]
  - Drug ineffective [Unknown]
  - Prothrombin time prolonged [Unknown]

NARRATIVE: CASE EVENT DATE: 201412
